FAERS Safety Report 26069671 (Version 1)
Quarter: 2025Q4

REPORT INFORMATION
  Report Type: Spontaneous
  Country: US (occurrence: US)
  Receive Date: 20251120
  Receipt Date: 20251120
  Transmission Date: 20260118
  Serious: No
  Sender: CATALYST PHARMA
  Company Number: US-CATALYST PHARMACEUTICALS-US-CATA-25-01144

PATIENT
  Age: 6 Year
  Sex: Male
  Weight: 21.315 kg

DRUGS (6)
  1. AGAMREE [Suspect]
     Active Substance: VAMOROLONE
     Indication: Duchenne muscular dystrophy
     Dosage: 2.9 ML ONCE A DAY
     Route: 048
     Dates: start: 20240606
  2. MELATONIN [Concomitant]
     Active Substance: MELATONIN
     Indication: Insomnia
     Dosage: 2 GUMMIES AS NEEDED
     Route: 065
  3. MIRALAX [Concomitant]
     Active Substance: POLYETHYLENE GLYCOL 3350
     Indication: Constipation
     Dosage: A SCOOP ONCE A DAY
     Route: 065
  4. COMBINATION MULTIVITAMIN-PROBIOTIC [Concomitant]
     Indication: Hypovitaminosis
     Dosage: 2 GUMMIES ONCE A DAY
     Route: 065
  5. COMBINATION MULTIVITAMIN-PROBIOTIC [Concomitant]
     Indication: Gastrointestinal disorder prophylaxis
  6. SENNA [Concomitant]
     Active Substance: SENNOSIDES
     Indication: Constipation
     Dosage: ONCE A DAY
     Route: 048

REACTIONS (1)
  - Gastroenteritis viral [Recovered/Resolved]

NARRATIVE: CASE EVENT DATE: 20250720
